FAERS Safety Report 16314584 (Version 1)
Quarter: 2019Q2

REPORT INFORMATION
  Report Type: Spontaneous
  Country: JP (occurrence: JP)
  Receive Date: 20190515
  Receipt Date: 20190515
  Transmission Date: 20190711
  Serious: Yes (Other)
  Sender: FDA-Public Use
  Company Number: JP-EISAI MEDICAL RESEARCH-EC-2019-056329

PATIENT
  Age: 82 Year
  Sex: Male

DRUGS (1)
  1. ERIBULIN [Suspect]
     Active Substance: ERIBULIN
     Indication: SARCOMA
     Dosage: DOSE NOT PROVIDED
     Route: 042

REACTIONS (3)
  - Dysgeusia [Unknown]
  - Pancytopenia [Unknown]
  - Hypoaesthesia [Unknown]
